FAERS Safety Report 25312057 (Version 1)
Quarter: 2025Q2

REPORT INFORMATION
  Report Type: Spontaneous
  Country: RO (occurrence: RO)
  Receive Date: 20250510
  Receipt Date: 20250510
  Transmission Date: 20250717
  Serious: Yes (Hospitalization, Other)
  Sender: NOVO NORDISK
  Company Number: RO-NOVOPROD-1414890

PATIENT
  Age: 64 Year
  Sex: Male

DRUGS (1)
  1. RYBELSUS [Suspect]
     Active Substance: SEMAGLUTIDE
     Indication: Product used for unknown indication
     Dosage: 14 MG, QD

REACTIONS (3)
  - Cholelithotomy [Unknown]
  - Amylase increased [Unknown]
  - Lipase increased [Unknown]
